FAERS Safety Report 22656148 (Version 7)
Quarter: 2025Q1

REPORT INFORMATION
  Report Type: Spontaneous
  Country: US (occurrence: US)
  Receive Date: 20230629
  Receipt Date: 20250108
  Transmission Date: 20250408
  Serious: Yes (Other)
  Sender: PFIZER
  Company Number: US-PFIZER INC-PV202300114221

PATIENT
  Age: 67 Year
  Sex: Female
  Weight: 81.361 kg

DRUGS (4)
  1. BOSULIF [Suspect]
     Active Substance: BOSUTINIB MONOHYDRATE
     Indication: Chronic myeloid leukaemia
     Dosage: 400 MG, 1X/DAY
     Route: 048
     Dates: start: 20211129, end: 20220513
  2. BOSULIF [Suspect]
     Active Substance: BOSUTINIB MONOHYDRATE
     Indication: Post herpetic neuralgia
     Dates: start: 202204
  3. BOSULIF [Suspect]
     Active Substance: BOSUTINIB MONOHYDRATE
     Indication: Acute lymphocytic leukaemia
  4. LETROZOLE [Concomitant]
     Active Substance: LETROZOLE

REACTIONS (14)
  - Clostridium difficile infection [Unknown]
  - Oedema peripheral [Recovering/Resolving]
  - Erythema [Unknown]
  - Diarrhoea [Recovering/Resolving]
  - Fatigue [Unknown]
  - Pyrexia [Unknown]
  - Pain in extremity [Unknown]
  - Arthralgia [Unknown]
  - Decreased appetite [Unknown]
  - Dyspepsia [Unknown]
  - Skin disorder [Unknown]
  - Swelling [Unknown]
  - Weight decreased [Unknown]
  - Off label use [Unknown]
